FAERS Safety Report 11839701 (Version 1)
Quarter: 2015Q4

REPORT INFORMATION
  Report Type: Spontaneous
  Country: US (occurrence: US)
  Receive Date: 20151216
  Receipt Date: 20151216
  Transmission Date: 20160305
  Serious: Yes (Other)
  Sender: FDA-Public Use
  Company Number: US-CIPLA LTD.-2015US09250

PATIENT

DRUGS (3)
  1. MELPHALAN [Suspect]
     Active Substance: MELPHALAN
     Indication: NEUROBLASTOMA
     Dosage: 70 MG/M2/DOSE ON DAY -7, -6, AND -5
     Route: 065
  2. CARBOPLATIN. [Suspect]
     Active Substance: CARBOPLATIN
     Indication: NEUROBLASTOMA
     Dosage: 425 MG/M2/DOSE ON DAY -7, -6, -5, AND -4 WITH INITIAL DOSE ADJUSTED ACCORDING TO PRETRANSPLANT GFR
     Route: 065
  3. ETOPOSIDE. [Suspect]
     Active Substance: ETOPOSIDE
     Indication: NEUROBLASTOMA
     Dosage: 338 MG/M2/DOSE ON DAY -7, -6, -5, AND -4
     Route: 065

REACTIONS (1)
  - Venoocclusive liver disease [Recovered/Resolved]
